FAERS Safety Report 11696018 (Version 1)
Quarter: 2015Q4

REPORT INFORMATION
  Report Type: Spontaneous
  Country: US (occurrence: None)
  Receive Date: 20151103
  Receipt Date: 20151103
  Transmission Date: 20160304
  Serious: Yes (Disabling, Other)
  Sender: FDA-Public Use
  Company Number: None

PATIENT
  Age: 63 Year
  Sex: Female
  Weight: 42.18 kg

DRUGS (13)
  1. PLACQUENIL [Concomitant]
  2. PERDIEM WITH STIMULANT [Concomitant]
  3. VITAMIN D [Concomitant]
     Active Substance: CHOLECALCIFEROL
  4. NORFLEX [Concomitant]
     Active Substance: ORPHENADRINE CITRATE
  5. B2 [Concomitant]
  6. DIAZAPAM 10 MG GEL [Concomitant]
     Active Substance: DIAZEPAM
  7. BLOOD SERUM DROPS [Concomitant]
  8. NYSTATIN/PRDNS/Q-DRYL [Concomitant]
  9. SYNTHROID [Concomitant]
     Active Substance: LEVOTHYROXINE SODIUM
  10. ACYCLOVIR. [Concomitant]
     Active Substance: ACYCLOVIR
  11. BENLYSTA [Suspect]
     Active Substance: BELIMUMAB
     Indication: SYSTEMIC LUPUS ERYTHEMATOSUS
     Dosage: ONE MONTHLY AFTER LOAD
     Route: 042
     Dates: start: 20090909, end: 20150430
  12. ZYLET [Concomitant]
     Active Substance: LOTEPREDNOL ETABONATE\TOBRAMYCIN
  13. SALAGEN [Concomitant]
     Active Substance: PILOCARPINE HYDROCHLORIDE

REACTIONS (2)
  - B-cell lymphoma stage III [None]
  - Migraine [None]

NARRATIVE: CASE EVENT DATE: 20150518
